FAERS Safety Report 22691454 (Version 3)
Quarter: 2023Q4

REPORT INFORMATION
  Report Type: Spontaneous
  Country: CA (occurrence: CA)
  Receive Date: 20230711
  Receipt Date: 20231017
  Transmission Date: 20240110
  Serious: Yes (Hospitalization, Other)
  Sender: FDA-Public Use
  Company Number: CA-PFIZER INC-PV202200112625

PATIENT
  Age: 62 Year
  Sex: Male
  Weight: 90.9 kg

DRUGS (4)
  1. RUXIENCE [Suspect]
     Active Substance: RITUXIMAB-PVVR
     Indication: Autoimmune pancreatitis
     Dosage: 1000 MG FREQUENCY: DAY 1 AND DAY 15 THEN Q6MONTHS
     Route: 042
     Dates: start: 20221216
  2. RUXIENCE [Suspect]
     Active Substance: RITUXIMAB-PVVR
     Dosage: 1000 MG  FREQUENCY: DAY 1 AND DAY 15 THEN Q6MONTHS
     Route: 042
     Dates: start: 20230705
  3. RUXIENCE [Suspect]
     Active Substance: RITUXIMAB-PVVR
     Dosage: 1000 MG  FREQUENCY: DAY 1 AND DAY 15 THEN Q6MONTHS
     Route: 042
     Dates: start: 20230706
  4. PREDNISONE [Concomitant]
     Active Substance: PREDNISONE
     Dosage: 10 MG, DAILY (QD PO)
     Route: 048

REACTIONS (16)
  - Meningitis bacterial [Unknown]
  - Hypertension [Recovered/Resolved]
  - Flushing [Recovered/Resolved]
  - Throat irritation [Recovered/Resolved]
  - Feeling cold [Recovered/Resolved]
  - Tremor [Recovered/Resolved]
  - Chills [Recovered/Resolved]
  - Pharyngeal swelling [Recovered/Resolved]
  - Heart rate irregular [Recovered/Resolved]
  - Respiratory rate increased [Recovered/Resolved]
  - Vomiting [Recovered/Resolved]
  - Pyrexia [Recovered/Resolved]
  - Drug hypersensitivity [Recovered/Resolved]
  - Infusion related reaction [Recovered/Resolved]
  - Weight decreased [Unknown]
  - Off label use [Unknown]

NARRATIVE: CASE EVENT DATE: 20230705
